FAERS Safety Report 10120421 (Version 1)
Quarter: 2014Q2

REPORT INFORMATION
  Report Type: Spontaneous
  Country: US (occurrence: US)
  Receive Date: 20140425
  Receipt Date: 20140425
  Transmission Date: 20141212
  Serious: No
  Sender: FDA-Public Use
  Company Number: US-PFIZER INC-2014113267

PATIENT
  Age: 43 Year
  Sex: Female

DRUGS (1)
  1. XALKORI [Suspect]
     Indication: PAPILLARY THYROID CANCER
     Dosage: UNK
     Route: 048

REACTIONS (3)
  - Off label use [Unknown]
  - Dyspnoea [Unknown]
  - Dysphagia [Unknown]
